FAERS Safety Report 5466858-2 (Version None)
Quarter: 2007Q3

REPORT INFORMATION
  Report Type: 
  Country: None (occurrence: None)
  Receive Date: 20070925
  Receipt Date: 20070913
  Transmission Date: 20080115
  Serious: Yes (Other)
  Sender: FDA-Public Use
  Company Number: JP-AVENTIS-200712212JP

PATIENT
  Age: 67 Year
  Sex: Female

DRUGS (2)
  1. ALLEGRA [Suspect]
     Indication: URTICARIA
     Route: 048
  2. HERBAL PREPARATION [Concomitant]

REACTIONS (1)
  - HEPATIC FUNCTION ABNORMAL [None]
